FAERS Safety Report 6488056-6 (Version None)
Quarter: 2009Q4

REPORT INFORMATION
  Report Type: 
  Country: None (occurrence: None)
  Receive Date: 20091210
  Receipt Date: 20091204
  Transmission Date: 20100525
  Serious: Yes (Hospitalization)
  Sender: FDA-Public Use
  Company Number: DE-MERCK-0901DEU00091

PATIENT
  Age: 80 Year
  Sex: Female
  Weight: 70 kg

DRUGS (11)
  1. FOSAMAX [Suspect]
     Indication: OSTEOPOROSIS
     Route: 048
     Dates: start: 20070101, end: 20080708
  2. ASPIRIN [Suspect]
     Indication: CARDIOVASCULAR EVENT PROPHYLAXIS
     Route: 048
     Dates: start: 20080601, end: 20080729
  3. INSULIN, BIPHASIC ISOPHANE [INJECTION] [Concomitant]
     Indication: TYPE 2 DIABETES MELLITUS
     Dosage: 0-0-0-14
     Route: 058
     Dates: start: 19950101, end: 20080729
  4. INSULIN HUMAN [Concomitant]
     Indication: TYPE 2 DIABETES MELLITUS
     Dosage: 18-10-0
     Route: 058
     Dates: start: 19950101, end: 20080729
  5. CALCIUM GLUCONATE AND CALCIUM LACTATE [Concomitant]
     Indication: OSTEOPOROSIS
     Route: 048
     Dates: start: 20030101, end: 20080729
  6. CHOLECALCIFEROL [Concomitant]
     Indication: OSTEOPOROSIS
     Route: 048
     Dates: start: 20040101, end: 20080728
  7. FENTANYL [Concomitant]
     Indication: PAIN
     Dosage: 50 MGH/H, NEW PATCH EVERY THIRD DAY
     Route: 061
     Dates: start: 20080601, end: 20080731
  8. NEBIVOLOL [Concomitant]
     Indication: HYPERTENSION
     Route: 048
     Dates: start: 20000101, end: 20080729
  9. DIPYRONE [Concomitant]
     Indication: PAIN
     Dosage: 3X750MG, 1X1000MG IN THE EVENING
     Route: 048
     Dates: start: 20060601, end: 20080729
  10. RAMIPRIL [Concomitant]
     Indication: HYPERTENSION
     Route: 048
     Dates: start: 20020101, end: 20080729
  11. TORSEMIDE [Concomitant]
     Indication: CARDIAC FAILURE
     Route: 048
     Dates: start: 20080601, end: 20090729

REACTIONS (1)
  - GASTRIC ULCER [None]
